FAERS Safety Report 16573130 (Version 1)
Quarter: 2019Q3

REPORT INFORMATION
  Report Type: Spontaneous
  Country: US (occurrence: US)
  Receive Date: 20190531
  Receipt Date: 20190531
  Transmission Date: 20191004
  Serious: Yes (Hospitalization)
  Sender: FDA-Public Use
  Company Number: None

PATIENT
  Age: 60 Year
  Sex: Male
  Weight: 51 kg

DRUGS (1)
  1. WARFARIN [Suspect]
     Active Substance: WARFARIN
     Indication: ATRIAL FIBRILLATION
     Route: 048
     Dates: start: 20180106, end: 20181031

REACTIONS (7)
  - Oesophagitis [None]
  - Escherichia infection [None]
  - Upper gastrointestinal haemorrhage [None]
  - Gastric haemorrhage [None]
  - Anticoagulation drug level above therapeutic [None]
  - Gastrointestinal haemorrhage [None]
  - Wound infection bacterial [None]

NARRATIVE: CASE EVENT DATE: 20181031
